FAERS Safety Report 11159610 (Version 1)
Quarter: 2015Q2

REPORT INFORMATION
  Report Type: Report from Study
  Country: US (occurrence: US)
  Receive Date: 20150603
  Receipt Date: 20150603
  Transmission Date: 20150821
  Serious: No
  Sender: FDA-Public Use
  Company Number: US-ABBVIE-14P-163-1267495-00

PATIENT
  Age: 40 Year
  Sex: Female
  Weight: 59.02 kg

DRUGS (4)
  1. FLEXERIL [Concomitant]
     Active Substance: CYCLOBENZAPRINE HYDROCHLORIDE
     Indication: MUSCLE SPASMS
  2. TYLENOL WITH CODEINE [Concomitant]
     Active Substance: ACETAMINOPHEN\CODEINE PHOSPHATE
     Indication: PAIN
  3. MARINOL [Suspect]
     Active Substance: DRONABINOL
     Indication: NAUSEA
     Dates: start: 2014, end: 20140723
  4. MARINOL [Suspect]
     Active Substance: DRONABINOL
     Indication: INCREASED APPETITE

REACTIONS (1)
  - Vomiting [Not Recovered/Not Resolved]

NARRATIVE: CASE EVENT DATE: 20140724
